FAERS Safety Report 9733482 (Version 2)
Quarter: 2014Q1

REPORT INFORMATION
  Report Type: Report from Study
  Country: US (occurrence: US)
  Receive Date: 20131205
  Receipt Date: 20140106
  Transmission Date: 20141002
  Serious: No
  Sender: FDA-Public Use
  Company Number: US-JNJFOC-20131115248

PATIENT
  Sex: Female

DRUGS (7)
  1. DURAGESIC [Suspect]
     Indication: PRODUCT USED FOR UNKNOWN INDICATION
     Route: 062
     Dates: end: 2011
  2. DURAGESIC [Suspect]
     Indication: PRODUCT USED FOR UNKNOWN INDICATION
     Route: 062
     Dates: start: 201311
  3. OXYMORPHONE [Concomitant]
     Indication: BREAKTHROUGH PAIN
     Route: 065
  4. CELEXA [Concomitant]
     Indication: DEPRESSION
     Route: 065
  5. WELLBUTRIN [Concomitant]
     Indication: DEPRESSION
     Route: 065
  6. ATIVAN [Concomitant]
     Indication: ANXIETY
     Route: 065
  7. SPIRIVA [Concomitant]
     Indication: ASTHMA
     Route: 065

REACTIONS (5)
  - Drug dose omission [Unknown]
  - Discomfort [Unknown]
  - Application site rash [Not Recovered/Not Resolved]
  - Product quality issue [Not Recovered/Not Resolved]
  - Drug ineffective [Not Recovered/Not Resolved]
